FAERS Safety Report 24114485 (Version 1)
Quarter: 2024Q3

REPORT INFORMATION
  Report Type: Spontaneous
  Country: FR (occurrence: FR)
  Receive Date: 20240720
  Receipt Date: 20240720
  Transmission Date: 20241017
  Serious: Yes (Hospitalization)
  Sender: RANBAXY
  Company Number: FR-SUN PHARMACEUTICAL INDUSTRIES LTD-2024RR-457678

PATIENT
  Age: 29 Year
  Sex: Male

DRUGS (2)
  1. PREGABALIN [Suspect]
     Active Substance: PREGABALIN
     Indication: Product used for unknown indication
     Dosage: UNK
     Route: 065
  2. CANNABIS SATIVA SUBSP. INDICA TOP [Suspect]
     Active Substance: CANNABIS SATIVA SUBSP. INDICA TOP
     Indication: Product used for unknown indication
     Dosage: 1 JOINT PER DAY
     Route: 055

REACTIONS (4)
  - Hallucination [Recovering/Resolving]
  - Withdrawal syndrome [Recovering/Resolving]
  - Catatonia [Recovering/Resolving]
  - Substance abuser [Unknown]

NARRATIVE: CASE EVENT DATE: 20100101
